FAERS Safety Report 21681148 (Version 4)
Quarter: 2023Q2

REPORT INFORMATION
  Report Type: Report from Study
  Country: US (occurrence: US)
  Receive Date: 20221205
  Receipt Date: 20230414
  Transmission Date: 20230722
  Serious: Yes (Other)
  Sender: FDA-Public Use
  Company Number: US-ABBVIE-4188799

PATIENT
  Age: 51 Year
  Sex: Female

DRUGS (3)
  1. SKYRIZI [Suspect]
     Active Substance: RISANKIZUMAB-RZAA
     Indication: Psoriasis
     Dosage: FORM STRENGTH WAS 40 MILLIGRAMS
     Route: 058
     Dates: start: 202212
  2. SKYRIZI [Suspect]
     Active Substance: RISANKIZUMAB-RZAA
     Indication: Psoriatic arthropathy
     Dosage: WEEK 4?FORM STRENGTH WAS 40 MILLIGRAMS
     Route: 058
     Dates: start: 202209, end: 202209
  3. SKYRIZI [Suspect]
     Active Substance: RISANKIZUMAB-RZAA
     Dosage: WEEK 0?FORM STRENGTH WAS 150 MILLIGRAMS
     Route: 058
     Dates: start: 20220825, end: 20220825

REACTIONS (6)
  - Meniscus injury [Not Recovered/Not Resolved]
  - Erythema [Unknown]
  - Drug ineffective [Unknown]
  - Pruritus [Not Recovered/Not Resolved]
  - Skin burning sensation [Unknown]
  - Skin exfoliation [Not Recovered/Not Resolved]

NARRATIVE: CASE EVENT DATE: 20230123
